FAERS Safety Report 6101688-X (Version None)
Quarter: 2009Q1

REPORT INFORMATION
  Report Type: 
  Country: None (occurrence: None)
  Receive Date: 20090304
  Receipt Date: 20090302
  Transmission Date: 20090719
  Serious: Yes (Hospitalization)
  Sender: FDA-Public Use
  Company Number: FR-BRISTOL-MYERS SQUIBB COMPANY-14510119

PATIENT
  Age: 34 Year
  Sex: Male

DRUGS (10)
  1. VIDEX [Suspect]
     Dosage: 1997 TO 1998 THEN FROM 2000 TO 2002
     Dates: start: 20000101, end: 20020101
  2. SUSTIVA [Suspect]
     Dosage: 1998 TO 2000 THEN FROM 04-APR-2002
     Route: 048
     Dates: start: 20020404
  3. ZERIT [Suspect]
     Dates: start: 19980101, end: 20020101
  4. REYATAZ [Suspect]
     Dosage: FROM 17-MAY-2004
     Dates: start: 20040517
  5. RETROVIR [Suspect]
     Dates: start: 19970101, end: 19980101
  6. EPIVIR [Suspect]
     Dates: start: 19980101, end: 20000101
  7. VIRACEPT [Suspect]
     Dates: start: 20000101, end: 20020101
  8. KALETRA [Suspect]
     Dosage: FROM 2002 TO 2004
     Dates: start: 20020101, end: 20040101
  9. ZIAGEN [Suspect]
     Dosage: FROM 04-APR-2002 2004
     Dates: start: 20020404
  10. NORVIR [Suspect]
     Dosage: FROM 17-MAY-2004
     Dates: start: 20040517

REACTIONS (6)
  - DIABETES MELLITUS [None]
  - HAEMATEMESIS [None]
  - HEPATIC CIRRHOSIS [None]
  - HEPATIC STEATOSIS [None]
  - LIPODYSTROPHY ACQUIRED [None]
  - VARICES OESOPHAGEAL [None]
